FAERS Safety Report 6071765-0 (Version None)
Quarter: 2009Q1

REPORT INFORMATION
  Report Type: 
  Country: None (occurrence: None)
  Receive Date: 20090205
  Receipt Date: 20090123
  Transmission Date: 20090719
  Serious: Yes (Hospitalization)
  Sender: FDA-Public Use
  Company Number: POMP-1000468

PATIENT
  Age: 8 Month
  Weight: 8.6 kg

DRUGS (3)
  1. MYOZYME [Suspect]
     Indication: GLYCOGEN STORAGE DISEASE TYPE II
     Dosage: INTRAVENOUS
     Route: 042
     Dates: start: 20080923, end: 20090120
  2. RITUXIMAB (RITUXIMAB) [Concomitant]
  3. METHOTREXATE [Concomitant]

REACTIONS (2)
  - INFUSION SITE REACTION [None]
  - SEPSIS [None]
